FAERS Safety Report 6834666-3 (Version None)
Quarter: 2010Q3

REPORT INFORMATION
  Report Type: 
  Country: None (occurrence: None)
  Receive Date: 20100712
  Receipt Date: 20070717
  Transmission Date: 20110219
  Serious: No
  Sender: FDA-Public Use
  Company Number: US-PFIZER INC-2007025766

PATIENT
  Sex: Female
  Weight: 46.7 kg

DRUGS (6)
  1. CHANTIX [Suspect]
     Indication: SMOKING CESSATION THERAPY
     Route: 048
     Dates: start: 20070302
  2. CHANTIX [Suspect]
     Indication: TOBACCO ABUSE
  3. DIPHENHYDRAMINE [Suspect]
     Indication: INSOMNIA
     Dates: start: 20070325, end: 20070326
  4. AMBIEN [Suspect]
     Indication: INSOMNIA
  5. LEXAPRO [Concomitant]
  6. ESTRADIOL [Concomitant]

REACTIONS (6)
  - ANXIETY [None]
  - DEPRESSION [None]
  - FATIGUE [None]
  - INSOMNIA [None]
  - NASOPHARYNGITIS [None]
  - SEDATION [None]
